FAERS Safety Report 21354710 (Version 1)
Quarter: 2022Q3

REPORT INFORMATION
  Report Type: Spontaneous
  Country: IE (occurrence: None)
  Receive Date: 20220920
  Receipt Date: 20220920
  Transmission Date: 20221027
  Serious: Yes (Hospitalization, Other)
  Sender: FDA-Public Use
  Company Number: IE-MLMSERVICE-20220908-3781128-1

PATIENT
  Age: 76 Year
  Sex: Male

DRUGS (7)
  1. METRONIDAZOLE [Suspect]
     Active Substance: METRONIDAZOLE
     Indication: Rectal abscess
     Route: 048
  2. FINASTERIDE [Concomitant]
     Active Substance: FINASTERIDE
  3. ASPIRIN [Concomitant]
     Active Substance: ASPIRIN
  4. DAPTOMYCIN [Suspect]
     Active Substance: DAPTOMYCIN
     Indication: Rectal abscess
     Route: 042
  5. LANSOPRAZOLE [Concomitant]
     Active Substance: LANSOPRAZOLE
  6. CEFUROXIME [Suspect]
     Active Substance: CEFUROXIME
     Indication: Rectal abscess
     Route: 042
  7. CEFUROXIME [Suspect]
     Active Substance: CEFUROXIME
     Indication: Rectal abscess
     Route: 042

REACTIONS (1)
  - Toxic encephalopathy [Recovered/Resolved]
